FAERS Safety Report 19051031 (Version 1)
Quarter: 2021Q1

REPORT INFORMATION
  Report Type: Spontaneous
  Country: US (occurrence: US)
  Receive Date: 20210324
  Receipt Date: 20210324
  Transmission Date: 20210420
  Serious: No
  Sender: FDA-Public Use
  Company Number: US-ALLERGAN-2021639US

PATIENT
  Age: 24 Year
  Sex: Male
  Weight: 73.94 kg

DRUGS (3)
  1. MESALAZINE ? BP [Suspect]
     Active Substance: MESALAMINE
     Indication: COLITIS ULCERATIVE
     Dosage: 4.8 G, QD
     Route: 065
  2. HUMIRA [Suspect]
     Active Substance: ADALIMUMAB
     Indication: COLITIS ULCERATIVE
     Dosage: UNK
     Route: 065
  3. MESALAZINE ? BP [Suspect]
     Active Substance: MESALAMINE
     Dosage: 2.4 G, QD
     Route: 065

REACTIONS (7)
  - Probiotic therapy [Unknown]
  - Drug ineffective [Unknown]
  - Eating disorder [Unknown]
  - Malaise [Unknown]
  - Surgery [Unknown]
  - Blood test abnormal [Unknown]
  - Weight decreased [Unknown]

NARRATIVE: CASE EVENT DATE: 20200520
